FAERS Safety Report 4975934-X (Version None)
Quarter: 2006Q2

REPORT INFORMATION
  Report Type: 
  Country: None (occurrence: None)
  Receive Date: 20060411
  Receipt Date: 20060327
  Transmission Date: 20061013
  Serious: Yes (Other)
  Sender: FDA-Public Use
  Company Number: WSDF_00532

PATIENT
  Age: 13 Year
  Sex: Female

DRUGS (4)
  1. WINRHO SDF [Suspect]
     Dosage: 1000 MCG; ONCE
     Dates: start: 20050412, end: 20050412
  2. WINRHO SDF [Suspect]
     Dosage: 1000 MCG; ONCE
     Dates: start: 20050422, end: 20050422
  3. GAMUNEX [Concomitant]
  4. IMMUNE GLOBULIN INTRAVENOUS (HUMAN) [Concomitant]

REACTIONS (1)
  - ANTI-HBC IGG ANTIBODY POSITIVE [None]
